FAERS Safety Report 7189977-1 (Version None)
Quarter: 2010Q4

REPORT INFORMATION
  Report Type: 
  Country: None (occurrence: None)
  Receive Date: 20101223
  Receipt Date: 20101214
  Transmission Date: 20110411
  Serious: Yes (Hospitalization)
  Sender: FDA-Public Use
  Company Number: US-PFIZER INC-2003191633US

PATIENT
  Sex: Male

DRUGS (12)
  1. PROTONIX [Suspect]
     Dosage: 40 MG, 1X/DAY
     Route: 042
     Dates: start: 20031202
  2. HEPARIN SODIUM [Suspect]
     Dosage: UNK
     Dates: start: 20031202
  3. LISINOPRIL [Suspect]
     Dosage: UNK
     Dates: start: 20031202
  4. METFORMIN HCL [Suspect]
  5. ZITHROMAX [Suspect]
     Dosage: UNK
     Dates: start: 20031202
  6. NITROGLYCERIN [Suspect]
  7. LOVENOX [Suspect]
     Dosage: UNK
     Dates: start: 20031202
  8. FUROSEMIDE [Suspect]
     Dosage: UNK
     Dates: start: 20031202
  9. POTASSIUM [Suspect]
     Dosage: UNK
     Dates: start: 20031202
  10. PROPOFOL [Suspect]
     Dosage: UNK
     Dates: start: 20031202
  11. PARACETAMOL [Suspect]
     Dosage: UNK
     Dates: start: 20031202
  12. ACETYLSALICYLIC ACID [Suspect]

REACTIONS (2)
  - BLOOD CREATINE PHOSPHOKINASE INCREASED [None]
  - RHABDOMYOLYSIS [None]
